FAERS Safety Report 9929256 (Version 1)
Quarter: 2014Q1

REPORT INFORMATION
  Report Type: Spontaneous
  Country: CH (occurrence: None)
  Receive Date: 20140224
  Receipt Date: 20140224
  Transmission Date: 20141002
  Serious: Yes (Other)
  Sender: FDA-Public Use
  Company Number: 20140080

PATIENT
  Age: 64 Year
  Sex: Male

DRUGS (6)
  1. FERINJECT [Suspect]
     Indication: IRON DEFICIENCY ANAEMIA
     Dosage: 1000 MG ONCE
     Dates: start: 20131106, end: 20131106
  2. ALIMTA [Suspect]
     Indication: PRURITUS
     Dosage: 845 MG ONE IN ONE
     Route: 041
     Dates: start: 20131106, end: 20131106
  3. ALIMTA [Suspect]
     Indication: NEOPLASM MALIGNANT
     Dosage: 845 MG ONE IN ONE
     Route: 041
     Dates: start: 20131106, end: 20131106
  4. DEXAMETHOSE MYLAN [Suspect]
     Indication: PRODUCT USED FOR UNKNOWN INDICATION
     Route: 041
     Dates: start: 20131105, end: 20131107
  5. VEPESID (ETOPOSIDE) [Concomitant]
  6. CARBOPLATIN [Concomitant]

REACTIONS (2)
  - Pruritus [None]
  - Folliculitis [None]
